FAERS Safety Report 8242695-0 (Version None)
Quarter: 2012Q1

REPORT INFORMATION
  Report Type: 
  Country: None (occurrence: None)
  Receive Date: 20120329
  Receipt Date: 20120319
  Transmission Date: 20120608
  Serious: Yes (Hospitalization)
  Sender: FDA-Public Use
  Company Number: JP-SP-2012-03267

PATIENT
  Age: 83 Year
  Sex: Male

DRUGS (1)
  1. IMMUCYST [Suspect]
     Indication: PRODUCT USED FOR UNKNOWN INDICATION
     Route: 043
     Dates: start: 20120305, end: 20120312

REACTIONS (1)
  - PYREXIA [None]
